FAERS Safety Report 16029755 (Version 1)
Quarter: 2019Q1

REPORT INFORMATION
  Report Type: Spontaneous
  Country: US (occurrence: US)
  Receive Date: 20190304
  Receipt Date: 20190304
  Transmission Date: 20190418
  Serious: Yes (Life-Threatening, Hospitalization)
  Sender: FDA-Public Use
  Company Number: US-MYLANLABS-2019M1017662

PATIENT
  Age: 62 Year
  Sex: Male

DRUGS (2)
  1. BUPIVACAINE. [Suspect]
     Active Substance: BUPIVACAINE
     Indication: BACK PAIN
     Dosage: 30 MG/ML SOLUTION INJECTED INTO THE IDDS
     Route: 037
  2. HYDROMORPHONE [Suspect]
     Active Substance: HYDROMORPHONE
     Indication: BACK PAIN
     Dosage: 0.5MG/ML SOLUTION INJECTED INTO THE IDDS
     Route: 037

REACTIONS (2)
  - Spinal shock [Recovered/Resolved]
  - Wrong technique in product usage process [Recovered/Resolved]
